FAERS Safety Report 7444838-5 (Version None)
Quarter: 2011Q2

REPORT INFORMATION
  Report Type: 
  Country: None (occurrence: None)
  Receive Date: 20110426
  Receipt Date: 20110426
  Transmission Date: 20111010
  Serious: Yes (Other)
  Sender: FDA-Public Use
  Company Number: None

PATIENT
  Age: 51 Year
  Sex: Male
  Weight: 97.5234 kg

DRUGS (1)
  1. TAMSULOSIN HCL [Suspect]
     Indication: PROSTATOMEGALY
     Dosage: 0.4MG ONCE DAILY PO
     Route: 048
     Dates: start: 20110423, end: 20110424

REACTIONS (6)
  - FATIGUE [None]
  - DRY MOUTH [None]
  - DRY EYE [None]
  - DYSPNOEA [None]
  - COUGH [None]
  - CHEST DISCOMFORT [None]
